FAERS Safety Report 6903859-9 (Version None)
Quarter: 2010Q3

REPORT INFORMATION
  Report Type: 
  Country: None (occurrence: None)
  Receive Date: 20100804
  Receipt Date: 20090112
  Transmission Date: 20110219
  Serious: Yes (Other)
  Sender: FDA-Public Use
  Company Number: US-PFIZER INC-2009154901

PATIENT
  Sex: Female
  Weight: 90.703 kg

DRUGS (3)
  1. LYRICA [Suspect]
     Indication: FIBROMYALGIA
     Dosage: UNK
     Dates: start: 20081201
  2. PROVIGIL [Concomitant]
     Dosage: UNK
  3. DRUG, UNSPECIFIED [Concomitant]

REACTIONS (3)
  - DYSPHAGIA [None]
  - ERYTHEMA [None]
  - PHARYNGEAL OEDEMA [None]
